FAERS Safety Report 9490626 (Version 2)
Quarter: 2013Q4

REPORT INFORMATION
  Report Type: Report from Study
  Country: DE (occurrence: DE)
  Receive Date: 20130830
  Receipt Date: 20131224
  Transmission Date: 20140711
  Serious: Yes (Hospitalization)
  Sender: FDA-Public Use
  Company Number: PHHY2013DE093728

PATIENT
  Sex: Female

DRUGS (3)
  1. FTY 720 [Suspect]
     Indication: MULTIPLE SCLEROSIS
     Dosage: 0.5 MG, QD
     Route: 048
     Dates: start: 20110926, end: 20130826
  2. TOLPERISONE [Concomitant]
     Indication: MUSCLE SPASTICITY
     Dosage: 50 MG, TID
     Route: 048
     Dates: start: 20090612
  3. SATIVEX [Concomitant]
     Indication: MUSCLE SPASTICITY
     Dosage: 100 ML, QD
     Route: 055
     Dates: start: 20121220

REACTIONS (1)
  - Cholestasis [Recovered/Resolved]
